FAERS Safety Report 7022589-9 (Version None)
Quarter: 2010Q3

REPORT INFORMATION
  Report Type: 
  Country: None (occurrence: None)
  Receive Date: 20100930
  Receipt Date: 20100920
  Transmission Date: 20110219
  Serious: Yes (Death)
  Sender: FDA-Public Use
  Company Number: DE-PFIZER INC-2010118339

PATIENT
  Age: 58 Year
  Sex: Female
  Weight: 102 kg

DRUGS (3)
  1. ZYVOX [Suspect]
     Indication: SEPSIS
     Dosage: UNK %, UNK
     Route: 042
     Dates: start: 20100729, end: 20100802
  2. CASPOFUNGIN [Concomitant]
     Indication: PROPHYLAXIS
     Dosage: UNK
     Route: 042
     Dates: start: 20100729, end: 20100802
  3. MEROPENEM [Concomitant]
     Indication: NEUTROPENIA
     Dosage: UNK
     Route: 042
     Dates: start: 20100729, end: 20100807

REACTIONS (1)
  - ACUTE HEPATIC FAILURE [None]
